FAERS Safety Report 10208071 (Version 2)
Quarter: 2014Q2

REPORT INFORMATION
  Report Type: Spontaneous
  Country: US (occurrence: US)
  Receive Date: 20140530
  Receipt Date: 20140530
  Transmission Date: 20141212
  Serious: Yes (Other)
  Sender: FDA-Public Use
  Company Number: US-PURDUE-USA-2014-0113455

PATIENT
  Age: 41 Year
  Sex: Female
  Weight: 60.77 kg

DRUGS (1)
  1. BUTRANS [Suspect]
     Indication: BACK PAIN
     Dosage: 20 MCG/HR, WEEKLY
     Route: 062
     Dates: start: 20140304, end: 20140328

REACTIONS (4)
  - Ecchymosis [Recovered/Resolved]
  - Mouth ulceration [Recovered/Resolved]
  - Haemorrhagic diathesis [Recovered/Resolved]
  - Contusion [Unknown]
